FAERS Safety Report 17570905 (Version 1)
Quarter: 2020Q1

REPORT INFORMATION
  Report Type: Spontaneous
  Country: US (occurrence: US)
  Receive Date: 20200323
  Receipt Date: 20200323
  Transmission Date: 20200409
  Serious: No
  Sender: FDA-Public Use
  Company Number: US-CIPLA LTD.-2019US04977

PATIENT

DRUGS (3)
  1. ATORVASTATIN [Concomitant]
     Active Substance: ATORVASTATIN
     Indication: BLOOD CHOLESTEROL ABNORMAL
     Dosage: 1 DOSAGE FORM (ONE TABLET, 10 MILLIGRAM), EVERY DAY
     Route: 065
     Dates: start: 201903
  2. LORAZEPAM. [Concomitant]
     Active Substance: LORAZEPAM
     Indication: STRESS
     Dosage: 1 DOSAGE FORM, PRN  (ONE TABLET, 1 MG, EVERY 6 HOURS WHEN EVER REQUIRED)
     Route: 065
     Dates: start: 2019
  3. SERTRALINE [Suspect]
     Active Substance: SERTRALINE HYDROCHLORIDE
     Indication: ANXIETY
     Dosage: 1 DOSAGE FORM (1 TABLET 100 MG), QD
     Route: 048
     Dates: start: 20190703

REACTIONS (3)
  - Insomnia [Not Recovered/Not Resolved]
  - Crying [Recovering/Resolving]
  - Tremor [Recovering/Resolving]

NARRATIVE: CASE EVENT DATE: 201907
